FAERS Safety Report 23327475 (Version 1)
Quarter: 2023Q4

REPORT INFORMATION
  Report Type: Spontaneous
  Country: FR (occurrence: FR)
  Receive Date: 20231221
  Receipt Date: 20231221
  Transmission Date: 20240109
  Serious: Yes (Death)
  Sender: FDA-Public Use
  Company Number: FR-SUN PHARMACEUTICAL INDUSTRIES LTD-2023RR-424026

PATIENT
  Age: 83 Year
  Sex: Male
  Weight: 72.8 kg

DRUGS (3)
  1. OLANZAPINE [Suspect]
     Active Substance: OLANZAPINE
     Indication: Medication error
     Dosage: 20 MILLIGRAM
     Route: 048
     Dates: start: 20230814, end: 20230814
  2. VALPROMIDE [Suspect]
     Active Substance: VALPROMIDE
     Indication: Medication error
     Dosage: 300 MILLIGRAM, ONCE
     Route: 048
     Dates: start: 20230814, end: 20230814
  3. SINEMET [Concomitant]
     Active Substance: CARBIDOPA\LEVODOPA
     Indication: Parkinson^s disease
     Dosage: 7 DOSAGE FORM, TREATMENT AS USUAL 2.5; 2,5 ; 2
     Route: 065

REACTIONS (2)
  - Sudden death [Fatal]
  - Wrong patient received product [Recovered/Resolved]

NARRATIVE: CASE EVENT DATE: 20230814
